FAERS Safety Report 7249306-1 (Version None)
Quarter: 2011Q1

REPORT INFORMATION
  Report Type: 
  Country: None (occurrence: None)
  Receive Date: 20110128
  Receipt Date: 20101129
  Transmission Date: 20110831
  Serious: Yes (Hospitalization)
  Sender: FDA-Public Use
  Company Number: US-BAYER-201023200NA

PATIENT
  Sex: Female
  Weight: 81.633 kg

DRUGS (11)
  1. YAZ [Suspect]
     Indication: PREMENSTRUAL SYNDROME
     Dosage: UNK
     Route: 048
     Dates: start: 20070101, end: 20080101
  2. IBUPROFEN [Concomitant]
     Dosage: 400 MG, UNK
     Dates: start: 20081001
  3. IBUPROFEN [Concomitant]
     Dosage: 800 MG, UNK
     Dates: start: 20090202
  4. PENICILLIN VK [Concomitant]
     Dosage: UNK
     Dates: start: 20090202
  5. ADVAIR DISKUS 100/50 [Concomitant]
     Dosage: UNK
     Dates: start: 20090316
  6. OCELLA [Suspect]
     Indication: PRODUCT USED FOR UNKNOWN INDICATION
     Route: 048
  7. LOESTRIN 1.5/30 [Concomitant]
  8. LEVAQUIN [Concomitant]
     Dosage: UNK
     Dates: start: 20090316
  9. MICROGESTIN 1.5/30 [Concomitant]
     Dosage: UNK
     Dates: start: 20090316
  10. ROCEPHIN [Concomitant]
  11. YASMIN [Suspect]
     Indication: PREMENSTRUAL SYNDROME
     Dosage: UNK
     Route: 048
     Dates: start: 20070101, end: 20080101

REACTIONS (7)
  - GALLBLADDER NON-FUNCTIONING [None]
  - ABDOMINAL PAIN [None]
  - VOMITING [None]
  - PAIN [None]
  - NAUSEA [None]
  - PYREXIA [None]
  - BILIARY DYSKINESIA [None]
